FAERS Safety Report 4552163-5 (Version None)
Quarter: 2004Q4

REPORT INFORMATION
  Report Type: 
  Country: None (occurrence: None)
  Receive Date: 20041217
  Receipt Date: 20040813
  Transmission Date: 20050328
  Serious: No
  Sender: FDA-Public Use
  Company Number: 2004-BP-06033BP

PATIENT
  Age: 88 Year
  Sex: Male

DRUGS (10)
  1. SPIRIVA [Suspect]
     Indication: CHRONIC OBSTRUCTIVE AIRWAYS DISEASE
     Dosage: 18 MCG (18 MCG), IH
     Route: 055
     Dates: start: 20040722
  2. ALBUTEROL (SALBUTMAOL) [Concomitant]
  3. IPRATROPIUM BROMIDE [Concomitant]
  4. ABUTEROL NEBULIZER (SALBUTAMOL) [Concomitant]
  5. FORADIL [Concomitant]
  6. NORVASC [Concomitant]
  7. DIOVAN [Concomitant]
  8. HYDROCHLOROTHIAZIDE [Concomitant]
  9. PLAVIX [Concomitant]
  10. POTASSIUM CHLORIDE [Concomitant]

REACTIONS (5)
  - COUGH [None]
  - DYSPNOEA EXERTIONAL [None]
  - INSOMNIA [None]
  - PRODUCTIVE COUGH [None]
  - REGURGITATION OF FOOD [None]
